FAERS Safety Report 5202382-X (Version None)
Quarter: 2006Q4

REPORT INFORMATION
  Report Type: 
  Country: None (occurrence: None)
  Receive Date: 20061012
  Receipt Date: 20060619
  Transmission Date: 20070319
  Serious: No
  Sender: FDA-Public Use
  Company Number: 2006S1000124

PATIENT
  Age: 45 Year
  Sex: Female
  Weight: 87 kg

DRUGS (10)
  1. CUBICIN [Suspect]
     Indication: STAPHYLOCOCCAL INFECTION
     Dosage: 4 MG/KG; Q24H; IV
     Route: 042
     Dates: start: 20060509
  2. OXYCODONE HCL [Concomitant]
  3. CARISOPRODOL [Concomitant]
  4. ALPRAZOLAM [Concomitant]
  5. MELOXICAM [Concomitant]
  6. ESOMEPRAZOLE MAGNESIUM [Concomitant]
  7. ATORVASTATIN CALCIUM [Concomitant]
  8. GABAPENTIN [Concomitant]
  9. NYSTATIN [Concomitant]
  10. SULFAMETHOXAZOLE + TRIMETHOPRIM [Concomitant]

REACTIONS (2)
  - FISTULA [None]
  - ORAL CANDIDIASIS [None]
